FAERS Safety Report 25410495 (Version 1)
Quarter: 2025Q2

REPORT INFORMATION
  Report Type: Report from Study
  Country: CA (occurrence: CA)
  Receive Date: 20250608
  Receipt Date: 20250608
  Transmission Date: 20250717
  Serious: Yes (Hospitalization, Other)
  Sender: ABBVIE
  Company Number: CA-ABBVIE-6313370

PATIENT
  Age: 76 Year
  Sex: Male

DRUGS (1)
  1. HUMIRA [Suspect]
     Active Substance: ADALIMUMAB
     Indication: Crohn^s disease
     Route: 058

REACTIONS (7)
  - Hepatic cirrhosis [Unknown]
  - Sepsis [Unknown]
  - Parkinsonism [Unknown]
  - Hepatic encephalopathy [Unknown]
  - Upper gastrointestinal haemorrhage [Unknown]
  - Gastritis erosive [Unknown]
  - Rash [Unknown]

NARRATIVE: CASE EVENT DATE: 20250101
